FAERS Safety Report 14352891 (Version 2)
Quarter: 2018Q1

REPORT INFORMATION
  Report Type: Report from Study
  Country: IL (occurrence: IL)
  Receive Date: 20180104
  Receipt Date: 20180109
  Transmission Date: 20180509
  Serious: Yes (Death, Hospitalization)
  Sender: FDA-Public Use
  Company Number: PHHY2018IL000677

PATIENT
  Age: 32 Year
  Sex: Male
  Weight: 90 kg

DRUGS (3)
  1. TEMOZOLOMIDE. [Concomitant]
     Active Substance: TEMOZOLOMIDE
     Indication: CHEMOTHERAPY
     Route: 065
  2. DABRAFENIB [Suspect]
     Active Substance: DABRAFENIB
     Indication: BRAF GENE MUTATION
     Dosage: 150 MG, BID
     Route: 048
     Dates: start: 20170629, end: 20171210
  3. TRAMETINIB [Suspect]
     Active Substance: TRAMETINIB
     Indication: BRAF GENE MUTATION
     Dosage: 2 MG, QD
     Route: 048
     Dates: start: 20170629, end: 20171210

REACTIONS (4)
  - Pyrexia [Unknown]
  - Malignant neoplasm progression [Fatal]
  - Epilepsy [Unknown]
  - Product use in unapproved indication [Unknown]

NARRATIVE: CASE EVENT DATE: 201710
